FAERS Safety Report 8621692-7 (Version None)
Quarter: 2012Q3

REPORT INFORMATION
  Report Type: 
  Country: None (occurrence: None)
  Receive Date: 20120821
  Receipt Date: 20120821
  Transmission Date: 20120928
  Serious: Yes (Other)
  Sender: FDA-Public Use
  Company Number: None

PATIENT
  Age: 51 Year
  Sex: Female
  Weight: 53.5244 kg

DRUGS (4)
  1. TOOTHPASTE (STOMATOLOGICALS, MOUTH PREPARATIONS) [Concomitant]
  2. UNKNOWN MEDICATION (ALL OTHER THERAPEUTIC PRODUCTS) [Concomitant]
  3. PEROXIDE (HYDROGEN PEROXIDE) UNSPECIFIED [Concomitant]
  4. LISTERINE WHITENING RINSE CLEAN HINT (ORAL CARE PRODUCTS) ORAL RINSE [Suspect]
     Indication: DENTAL CARE
     Dosage: , 2 IN 1 DAY, ORAL

REACTIONS (5)
  - LIP DRY [None]
  - AGEUSIA [None]
  - DRY MOUTH [None]
  - GLOSSITIS [None]
  - PRODUCT QUALITY ISSUE [None]
